FAERS Safety Report 12917906 (Version 2)
Quarter: 2016Q4

REPORT INFORMATION
  Report Type: Report from Study
  Country: None (occurrence: US)
  Receive Date: 20161107
  Receipt Date: 20161228
  Transmission Date: 20170207
  Serious: Yes (Hospitalization)
  Sender: FDA-Public Use
  Company Number: US-ABBVIE-16K-163-1770801-00

PATIENT
  Sex: Male
  Weight: 69.46 kg

DRUGS (2)
  1. HUMIRA [Suspect]
     Active Substance: ADALIMUMAB
     Indication: CROHN^S DISEASE
     Route: 058
     Dates: start: 201506, end: 20160908
  2. HUMIRA [Suspect]
     Active Substance: ADALIMUMAB
     Route: 058
     Dates: start: 201610

REACTIONS (8)
  - Incisional hernia [Recovered/Resolved]
  - Hernia [Unknown]
  - Intra-abdominal fluid collection [Not Recovered/Not Resolved]
  - Infection [Recovered/Resolved]
  - Crohn^s disease [Unknown]
  - Abdominal abscess [Not Recovered/Not Resolved]
  - Infection [Unknown]
  - Night sweats [Recovered/Resolved]

NARRATIVE: CASE EVENT DATE: 2015
